FAERS Safety Report 21592446 (Version 3)
Quarter: 2022Q4

REPORT INFORMATION
  Report Type: Spontaneous
  Country: US (occurrence: US)
  Receive Date: 20221114
  Receipt Date: 20221129
  Transmission Date: 20230112
  Serious: Yes (Other)
  Sender: FDA-Public Use
  Company Number: US-BIOGEN-2022BI01167320

PATIENT
  Age: 75 Year
  Sex: Female

DRUGS (33)
  1. ADUHELM [Suspect]
     Active Substance: ADUCANUMAB-AVWA
     Indication: Dementia Alzheimer^s type
     Dosage: 1ST INFUSION
     Route: 050
     Dates: start: 202107
  2. ADUHELM [Suspect]
     Active Substance: ADUCANUMAB-AVWA
     Dosage: 2ND INFUSION
     Route: 050
     Dates: start: 202108
  3. ADUHELM [Suspect]
     Active Substance: ADUCANUMAB-AVWA
     Dosage: 3RD INFUSION
     Route: 050
     Dates: start: 202109
  4. ADUHELM [Suspect]
     Active Substance: ADUCANUMAB-AVWA
     Dosage: 4TH INFUSION
     Route: 050
     Dates: start: 202110
  5. ADUHELM [Suspect]
     Active Substance: ADUCANUMAB-AVWA
     Dosage: 5TH INFUSION
     Route: 050
     Dates: start: 202111
  6. ADUHELM [Suspect]
     Active Substance: ADUCANUMAB-AVWA
     Dosage: 6TH INFUSION
     Route: 050
     Dates: start: 202112
  7. ADUHELM [Suspect]
     Active Substance: ADUCANUMAB-AVWA
     Dosage: 7TH INFUSION
     Route: 050
     Dates: start: 202201
  8. ADUHELM [Suspect]
     Active Substance: ADUCANUMAB-AVWA
     Dosage: 8TH INFUSION
     Route: 050
     Dates: start: 202202
  9. ADUHELM [Suspect]
     Active Substance: ADUCANUMAB-AVWA
     Dosage: 9TH INFUSION
     Route: 050
     Dates: start: 202203
  10. ADUHELM [Suspect]
     Active Substance: ADUCANUMAB-AVWA
     Dosage: 10TH INFUSION
     Route: 050
     Dates: start: 202204
  11. ADUHELM [Suspect]
     Active Substance: ADUCANUMAB-AVWA
     Dosage: 11TH INFUSION
     Route: 050
     Dates: start: 202205
  12. ADUHELM [Suspect]
     Active Substance: ADUCANUMAB-AVWA
     Dosage: 12TH INFUSION
     Route: 050
     Dates: start: 202206
  13. ADUHELM [Suspect]
     Active Substance: ADUCANUMAB-AVWA
     Dosage: 13TH INFUSION
     Route: 050
     Dates: start: 202207
  14. ADUHELM [Suspect]
     Active Substance: ADUCANUMAB-AVWA
     Dosage: 14TH INFUSION
     Route: 050
     Dates: start: 202208
  15. ADUHELM [Suspect]
     Active Substance: ADUCANUMAB-AVWA
     Dosage: 15TH INFUSION
     Route: 050
     Dates: start: 202209
  16. ADUHELM [Suspect]
     Active Substance: ADUCANUMAB-AVWA
     Dosage: 16TH INFUSION - LAST INFUSION
     Route: 050
     Dates: start: 20221024
  17. ESTRADIOL [Concomitant]
     Active Substance: ESTRADIOL
     Indication: Product used for unknown indication
     Route: 050
  18. LEVOTHYROXINE SODIUM [Concomitant]
     Active Substance: LEVOTHYROXINE SODIUM
     Indication: Product used for unknown indication
     Route: 050
  19. QUERCETIN [Concomitant]
     Active Substance: QUERCETIN
     Indication: Product used for unknown indication
     Route: 050
  20. PRASTERONE [Concomitant]
     Active Substance: PRASTERONE
     Indication: Product used for unknown indication
     Route: 050
  21. BUDESONIDE [Concomitant]
     Active Substance: BUDESONIDE
     Indication: Product used for unknown indication
     Route: 050
  22. NADOLOL [Concomitant]
     Active Substance: NADOLOL
     Indication: Product used for unknown indication
     Route: 050
  23. DILTIAZEM HYDROCHLORIDE [Concomitant]
     Active Substance: DILTIAZEM HYDROCHLORIDE
     Indication: Product used for unknown indication
     Route: 050
  24. KEPPRA [Concomitant]
     Active Substance: LEVETIRACETAM
     Indication: Product used for unknown indication
     Route: 050
  25. LAMOTRIGINE [Concomitant]
     Active Substance: LAMOTRIGINE
     Indication: Product used for unknown indication
     Route: 050
  26. OMEGA 3 [Concomitant]
     Active Substance: CAPSAICIN
     Indication: Product used for unknown indication
     Route: 050
  27. HERBALS\TURMERIC [Concomitant]
     Active Substance: HERBALS\TURMERIC
     Indication: Product used for unknown indication
     Route: 050
  28. UBIQUINOL [Concomitant]
     Active Substance: UBIQUINOL
     Indication: Product used for unknown indication
     Route: 050
  29. MAGNESIUM [Concomitant]
     Active Substance: MAGNESIUM
     Indication: Product used for unknown indication
     Route: 050
  30. PEPPERMINT OIL [Concomitant]
     Active Substance: PEPPERMINT OIL
     Indication: Product used for unknown indication
     Route: 050
  31. ALPHA LIPOIC ACID [Concomitant]
     Active Substance: .ALPHA.-LIPOIC ACID
     Indication: Product used for unknown indication
     Route: 050
  32. ASTRAGALUS [Concomitant]
     Indication: Product used for unknown indication
     Route: 050
  33. VYEPTI [Concomitant]
     Active Substance: EPTINEZUMAB-JJMR
     Indication: Product used for unknown indication
     Route: 050

REACTIONS (2)
  - Seizure [Unknown]
  - Dementia Alzheimer^s type [Unknown]

NARRATIVE: CASE EVENT DATE: 20220701
